FAERS Safety Report 7083598-7 (Version None)
Quarter: 2010Q4

REPORT INFORMATION
  Report Type: 
  Country: None (occurrence: None)
  Receive Date: 20101104
  Receipt Date: 20101027
  Transmission Date: 20110411
  Serious: Yes (Other)
  Sender: FDA-Public Use
  Company Number: FR-B.I. PHARMACEUTICALS,INC./RIDGEFIELD-2010-FF-00872FF

PATIENT
  Age: 57 Year
  Sex: Male

DRUGS (3)
  1. PRADAXA [Suspect]
     Indication: SURGERY
     Dosage: 220 MG
     Route: 048
     Dates: start: 20101007, end: 20101015
  2. NEXIUM [Suspect]
     Route: 048
  3. TENORETIC 100 [Concomitant]

REACTIONS (2)
  - DRUG INTERACTION [None]
  - EMBOLISM ARTERIAL [None]
